FAERS Safety Report 7488362-2 (Version None)
Quarter: 2011Q2

REPORT INFORMATION
  Report Type: 
  Country: None (occurrence: None)
  Receive Date: 20110518
  Receipt Date: 20110503
  Transmission Date: 20111010
  Serious: No
  Sender: FDA-Public Use
  Company Number: US-ASTRAZENECA-2011SE21512

PATIENT
  Sex: Female

DRUGS (2)
  1. CRESTOR [Suspect]
     Route: 048
  2. CRESTOR [Suspect]
     Route: 048

REACTIONS (5)
  - THYROID DISORDER [None]
  - DRUG DOSE OMISSION [None]
  - ARTERIOSCLEROSIS [None]
  - VASCULAR CALCIFICATION [None]
  - THERAPEUTIC RESPONSE UNEXPECTED [None]
